FAERS Safety Report 8387124-1 (Version None)
Quarter: 2012Q2

REPORT INFORMATION
  Report Type: 
  Country: None (occurrence: None)
  Receive Date: 20120523
  Receipt Date: 20120523
  Transmission Date: 20120825
  Serious: Yes (Hospitalization)
  Sender: FDA-Public Use
  Company Number: None

PATIENT
  Age: 87 Year
  Sex: Male
  Weight: 70 kg

DRUGS (7)
  1. IRON [Concomitant]
  2. FLOMAX [Concomitant]
  3. PRADAXA [Suspect]
     Indication: ATRIAL FIBRILLATION
     Dosage: 150 MG BID PO SEVERAL MONTHS PRIOR TO THIS EVENT
     Route: 048
  4. AMIODARONE HCL [Concomitant]
  5. FOLBEE [Concomitant]
  6. TOPROL-XL [Concomitant]
  7. ZOCOR [Concomitant]

REACTIONS (4)
  - DIZZINESS [None]
  - RECTAL HAEMORRHAGE [None]
  - ASTHENIA [None]
  - FATIGUE [None]
